FAERS Safety Report 10046934 (Version 4)
Quarter: 2014Q2

REPORT INFORMATION
  Report Type: Spontaneous
  Country: CA (occurrence: CA)
  Receive Date: 20140331
  Receipt Date: 20140617
  Transmission Date: 20141212
  Serious: Yes (Hospitalization, Other)
  Sender: FDA-Public Use
  Company Number: CA-AMGEN-CANSP2014021817

PATIENT
  Age: 81 Year
  Sex: Female

DRUGS (6)
  1. PROLIA [Suspect]
     Indication: OSTEOPOROSIS POSTMENOPAUSAL
     Dosage: 60 MG, Q6MO
     Route: 058
     Dates: start: 20130528, end: 20140424
  2. LIPITOR [Concomitant]
  3. CALCIUM [Concomitant]
  4. VITAMIN D                          /00107901/ [Concomitant]
  5. ATORVASTATIN [Concomitant]
     Indication: HYPERCHOLESTEROLAEMIA
     Dosage: 10 MG, QD
     Route: 048
  6. ETIDRONATE [Concomitant]

REACTIONS (5)
  - Peripheral artery thrombosis [Recovering/Resolving]
  - Thrombosis [Unknown]
  - Blood disorder [Unknown]
  - Sleep disorder due to general medical condition, insomnia type [Unknown]
  - Muscle spasms [Unknown]
